FAERS Safety Report 17004690 (Version 9)
Quarter: 2020Q3

REPORT INFORMATION
  Report Type: Spontaneous
  Country: US (occurrence: US)
  Receive Date: 20191107
  Receipt Date: 20200812
  Transmission Date: 20201102
  Serious: Yes (Other)
  Sender: FDA-Public Use
  Company Number: US-PFIZER INC-2019478801

PATIENT
  Age: 76 Year
  Sex: Female
  Weight: 72.57 kg

DRUGS (2)
  1. PREMARIN [Suspect]
     Active Substance: ESTROGENS, CONJUGATED
     Dosage: 0.5 G, 2X/WEEK (APPLY TO VULVA AND URETHRAL OPENING TWICE WEEKLY)
     Route: 067
     Dates: start: 20200207
  2. PREMARIN [Suspect]
     Active Substance: ESTROGENS, CONJUGATED
     Indication: THERAPEUTIC PROCEDURE
     Dosage: UNK, 2X/WEEK (FIRST MARK ON THE APPLICATOR TWICE A WEEK)
     Route: 067
     Dates: start: 2016

REACTIONS (5)
  - Diverticulitis [Unknown]
  - Off label use [Unknown]
  - Therapeutic response unexpected [Unknown]
  - Memory impairment [Unknown]
  - Product use in unapproved indication [Unknown]

NARRATIVE: CASE EVENT DATE: 2016
